FAERS Safety Report 7823255-X (Version None)
Quarter: 2011Q4

REPORT INFORMATION
  Report Type: 
  Country: None (occurrence: None)
  Receive Date: 20111019
  Receipt Date: 20111012
  Transmission Date: 20120403
  Serious: Yes (Hospitalization, Other)
  Sender: FDA-Public Use
  Company Number: GB-SP-2011-09954

PATIENT
  Sex: Male

DRUGS (1)
  1. IMMUCYST [Suspect]
     Indication: BLADDER CANCER
     Dosage: NOT REPORTED
     Route: 023

REACTIONS (3)
  - TESTICULAR MASS [None]
  - URINARY TRACT INFECTION [None]
  - MALE GENITAL TRACT TUBERCULOSIS [None]
